FAERS Safety Report 6811255-8 (Version None)
Quarter: 2010Q2

REPORT INFORMATION
  Report Type: 
  Country: None (occurrence: None)
  Receive Date: 20100630
  Receipt Date: 20100625
  Transmission Date: 20101027
  Serious: Yes (Death)
  Sender: FDA-Public Use
  Company Number: US-GILEAD-2010-0030078

PATIENT
  Sex: Female

DRUGS (11)
  1. LETAIRIS [Suspect]
     Indication: PULMONARY ARTERIAL HYPERTENSION
     Route: 048
     Dates: start: 20100609
  2. SPIRONOLACTONE [Concomitant]
  3. LASIX [Concomitant]
  4. COUMADIN [Concomitant]
  5. CARVEDILOL [Concomitant]
  6. POTASSIUM CHLORIDE [Concomitant]
  7. SYNTHROID [Concomitant]
  8. CITALOPRAM HYDROBROMIDE [Concomitant]
  9. GLYBURIDE [Concomitant]
  10. PRILOSEC [Concomitant]
  11. VICODIN [Concomitant]

REACTIONS (1)
  - DEATH [None]
